FAERS Safety Report 24722427 (Version 1)
Quarter: 2024Q4

REPORT INFORMATION
  Report Type: Spontaneous
  Country: FR (occurrence: None)
  Receive Date: 20241211
  Receipt Date: 20241211
  Transmission Date: 20250114
  Serious: Yes (Other)
  Sender: SOLSTICE NEUROSCIENCES, LLC
  Company Number: FR-Solstice Neurosciences, LLC-SOL202412-004540

PATIENT
  Age: 71 Year
  Sex: Female

DRUGS (1)
  1. RIMABOTULINUMTOXINB [Suspect]
     Active Substance: RIMABOTULINUMTOXINB
     Indication: Oesophageal spasm
     Dosage: NOT PROVIDED

REACTIONS (2)
  - Infective aneurysm [Unknown]
  - Product use in unapproved indication [Unknown]
